FAERS Safety Report 14262585 (Version 4)
Quarter: 2019Q3

REPORT INFORMATION
  Report Type: Report from Study
  Country: JP (occurrence: JP)
  Receive Date: 20171208
  Receipt Date: 20190912
  Transmission Date: 20191004
  Serious: Yes (Other)
  Sender: FDA-Public Use
  Company Number: JP-AMGEN-JPNCT2017182950

PATIENT
  Age: 63 Year
  Sex: Male
  Weight: 64 kg

DRUGS (36)
  1. ADETPHOS [Concomitant]
     Active Substance: ADENOSINE TRIPHOSPHATE
     Indication: DECREASED APPETITE
     Dosage: UNK
     Route: 048
  2. ROMIPLOSTIM [Suspect]
     Active Substance: ROMIPLOSTIM
     Dosage: 5.5 MICROGRAM/KILOGRAM, QWK
     Route: 058
     Dates: start: 20130620, end: 20130627
  3. ROMIPLOSTIM [Suspect]
     Active Substance: ROMIPLOSTIM
     Dosage: 6.6 MICROGRAM/KILOGRAM, QD
     Route: 058
     Dates: start: 20130704, end: 20130704
  4. SOL-MELCORT [Suspect]
     Active Substance: METHYLPREDNISOLONE SODIUM SUCCINATE
     Indication: IMMUNE THROMBOCYTOPENIC PURPURA
     Dosage: 500 MG
     Route: 042
     Dates: start: 20130530, end: 20130601
  5. BAKTAR [Concomitant]
     Active Substance: SULFAMETHOXAZOLE\TRIMETHOPRIM
     Indication: PROPHYLAXIS
     Dosage: UNK
     Route: 048
  6. PREDONINE [Suspect]
     Active Substance: PREDNISOLONE
     Dosage: 5 MG
     Route: 048
     Dates: start: 20130711, end: 20130717
  7. SOL-MELCORT [Suspect]
     Active Substance: METHYLPREDNISOLONE SODIUM SUCCINATE
     Dosage: 125 MG
     Route: 042
     Dates: start: 20130602, end: 20130604
  8. PIOGLITAZONE. [Concomitant]
     Active Substance: PIOGLITAZONE
     Indication: TYPE 2 DIABETES MELLITUS
     Dosage: UNK
     Route: 048
  9. LIVALO [Concomitant]
     Active Substance: PITAVASTATIN CALCIUM
     Indication: HYPERLIPIDAEMIA
     Dosage: UNK
     Route: 048
  10. LANSOPRAZOLE. [Concomitant]
     Active Substance: LANSOPRAZOLE
     Indication: PROPHYLAXIS
     Dosage: UNK
     Route: 065
  11. ROMIPLOSTIM [Suspect]
     Active Substance: ROMIPLOSTIM
     Dosage: 7.5 MICROGRAM/KILOGRAM, QWK
     Route: 058
     Dates: start: 20130711
  12. ROMIPLOSTIM [Suspect]
     Active Substance: ROMIPLOSTIM
     Dosage: 5.5 MICROGRAM/KILOGRAM, QWK
     Route: 058
     Dates: start: 20130830, end: 20131122
  13. ROMIPLOSTIM [Suspect]
     Active Substance: ROMIPLOSTIM
     Dosage: 6.3 MICROGRAM/KILOGRAM, QWK
     Route: 058
     Dates: start: 20131129
  14. PREDONINE [Suspect]
     Active Substance: PREDNISOLONE
     Indication: IMMUNE THROMBOCYTOPENIC PURPURA
     Dosage: 7.5 MG
     Route: 048
     Dates: start: 20130608, end: 20130619
  15. SOL-MELCORT [Suspect]
     Active Substance: METHYLPREDNISOLONE SODIUM SUCCINATE
     Dosage: 40 MG
     Route: 042
     Dates: start: 20130605, end: 20130607
  16. NEORAL [Concomitant]
     Active Substance: CYCLOSPORINE
     Indication: IMMUNE THROMBOCYTOPENIC PURPURA
     Dosage: 200 MG
     Route: 048
     Dates: start: 20130218, end: 20130613
  17. CIPROFLOXACIN. [Concomitant]
     Active Substance: CIPROFLOXACIN
     Indication: PNEUMONIA
     Dosage: UNK
     Route: 065
  18. GLIMEPIRIDE. [Concomitant]
     Active Substance: GLIMEPIRIDE
     Indication: TYPE 2 DIABETES MELLITUS
     Dosage: UNK
     Route: 048
  19. FEBURIC [Concomitant]
     Active Substance: FEBUXOSTAT
     Indication: HYPERURICAEMIA
     Dosage: UNK
     Route: 048
  20. ALDACTONE A [Concomitant]
     Active Substance: SPIRONOLACTONE
     Indication: HYPERTENSION
     Dosage: UNK
     Route: 048
  21. MICARDIS [Concomitant]
     Active Substance: TELMISARTAN
     Dosage: UNK
     Route: 048
  22. PREDONINE [Suspect]
     Active Substance: PREDNISOLONE
     Dosage: 7.5 MG
     Route: 048
     Dates: start: 20130625, end: 20130710
  23. SOL-MELCORT [Suspect]
     Active Substance: METHYLPREDNISOLONE SODIUM SUCCINATE
     Dosage: 125 MG
     Route: 042
     Dates: start: 20130620, end: 20130622
  24. ADETPHOS [Concomitant]
     Active Substance: ADENOSINE TRIPHOSPHATE
     Dosage: UNK
     Route: 048
  25. FINIBAX [Concomitant]
     Active Substance: DORIPENEM MONOHYDRATE
     Indication: PNEUMONIA
     Dosage: UNK
     Route: 041
  26. ROMIPLOSTIM [Suspect]
     Active Substance: ROMIPLOSTIM
     Indication: IMMUNE THROMBOCYTOPENIC PURPURA
     Dosage: 4 MICROGRAM/KILOGRAM, QD
     Route: 058
     Dates: start: 20130613, end: 20130613
  27. PREDONINE [Suspect]
     Active Substance: PREDNISOLONE
     Dosage: 2.5 MG
     Route: 048
     Dates: start: 20130718, end: 20130724
  28. TRAZENTA [Concomitant]
     Active Substance: LINAGLIPTIN
     Indication: TYPE 2 DIABETES MELLITUS
     Dosage: UNK
     Route: 048
  29. MICAMLO [Concomitant]
     Active Substance: AMLODIPINE BESYLATE\TELMISARTAN
     Indication: HYPERTENSION
     Dosage: UNK
     Route: 048
  30. ALDACTONE A [Concomitant]
     Active Substance: SPIRONOLACTONE
     Dosage: UNK
     Route: 048
  31. MICARDIS [Concomitant]
     Active Substance: TELMISARTAN
     Indication: HYPERTENSION
     Dosage: UNK
     Route: 048
  32. LANSOPRAZOLE. [Concomitant]
     Active Substance: LANSOPRAZOLE
     Dosage: UNK
     Route: 065
  33. ROMIPLOSTIM [Suspect]
     Active Substance: ROMIPLOSTIM
     Dosage: 6.6 MICROGRAM/KILOGRAM, QWK
     Route: 058
     Dates: start: 20130816, end: 20130823
  34. SOL-MELCORT [Suspect]
     Active Substance: METHYLPREDNISOLONE SODIUM SUCCINATE
     Dosage: 40 MG
     Route: 042
     Dates: start: 20130623, end: 20130624
  35. FINIBAX [Concomitant]
     Active Substance: DORIPENEM MONOHYDRATE
     Indication: PNEUMONIA
  36. LASIX [Concomitant]
     Active Substance: FUROSEMIDE
     Indication: RENAL IMPAIRMENT
     Dosage: UNK
     Route: 065

REACTIONS (8)
  - Renal impairment [Unknown]
  - Blood lactate dehydrogenase increased [Not Recovered/Not Resolved]
  - Hypoalbuminaemia [Not Recovered/Not Resolved]
  - Eosinophil count increased [Recovering/Resolving]
  - Hyperuricaemia [Unknown]
  - Eosinophil count increased [Not Recovered/Not Resolved]
  - Lower gastrointestinal haemorrhage [Unknown]
  - Hyperphosphatasaemia [Not Recovered/Not Resolved]

NARRATIVE: CASE EVENT DATE: 20130822
